FAERS Safety Report 8670228 (Version 2)
Quarter: 2013Q4

REPORT INFORMATION
  Report Type: Spontaneous
  Country: NL (occurrence: NL)
  Receive Date: 20120718
  Receipt Date: 20131031
  Transmission Date: 20140711
  Serious: Yes (Hospitalization)
  Sender: FDA-Public Use
  Company Number: NL-009507513-1206USA04932

PATIENT
  Age: 70 Year
  Sex: Male
  Weight: 80 kg

DRUGS (5)
  1. TRYPTIZOL [Suspect]
     Indication: DEPRESSION
     Dosage: 25 MG, TID
     Route: 048
     Dates: start: 20120227, end: 20120417
  2. CLOMIPRAMINE HYDROCHLORIDE [Suspect]
     Indication: DEPRESSION
     Dosage: 25 MG, TID
     Route: 048
     Dates: start: 19871217, end: 20120227
  3. SELOKEEN [Concomitant]
     Dosage: 200 MG, QD
     Dates: start: 1975
  4. LISINOPRIL [Concomitant]
     Dosage: 5 MG, QD
     Route: 048
     Dates: start: 20110923
  5. HYDROCHLOROTHIAZIDE (+) TRIAMTERENE [Concomitant]

REACTIONS (2)
  - Mania [Recovering/Resolving]
  - Hypomania [Recovering/Resolving]
